FAERS Safety Report 10287202 (Version 2)
Quarter: 2014Q3

REPORT INFORMATION
  Report Type: Spontaneous
  Country: IT (occurrence: None)
  Receive Date: 20140707
  Receipt Date: 20140711
  Transmission Date: 20150326
  Serious: Yes (Hospitalization, Other)
  Sender: FDA-Public Use
  Company Number: 2014AP003519

PATIENT
  Age: 41 Year
  Sex: Male
  Weight: 62 kg

DRUGS (5)
  1. ALLOPURINOL (ALLOPURINOL) TABLET [Suspect]
     Active Substance: ALLOPURINOL
     Indication: HYPERURICAEMIA
     Dates: start: 20140605, end: 20140609
  2. LASIX [Concomitant]
     Active Substance: FUROSEMIDE
  3. ATORVASTATIN (ATORVASTATIN) TABLET [Suspect]
     Active Substance: ATORVASTATIN
     Indication: HYPERCHOLESTEROLAEMIA
     Route: 048
     Dates: start: 20140501, end: 20140609
  4. BISOPROLOL HEMIFUMARATE (BISOPROLOL FUMARATE) [Concomitant]
  5. COLCHICINE. [Suspect]
     Active Substance: COLCHICINE
     Indication: ARTHRALGIA
     Route: 048
     Dates: start: 20140607, end: 20140609

REACTIONS (4)
  - Leukopenia [None]
  - Rhabdomyolysis [None]
  - Drug interaction [None]
  - Thrombocytopenia [None]

NARRATIVE: CASE EVENT DATE: 20140610
